FAERS Safety Report 6478503-8 (Version None)
Quarter: 2009Q4

REPORT INFORMATION
  Report Type: 
  Country: None (occurrence: None)
  Receive Date: 20091207
  Receipt Date: 20091204
  Transmission Date: 20100525
  Serious: Yes (Death)
  Sender: FDA-Public Use
  Company Number: CA-B.I. PHARMACEUTICALS,INC./RIDGEFIELD-2009-CN-00771CN

PATIENT

DRUGS (1)
  1. CATAPRES [Suspect]

REACTIONS (1)
  - NEOPLASM MALIGNANT [None]
